FAERS Safety Report 25255696 (Version 1)
Quarter: 2025Q2

REPORT INFORMATION
  Report Type: Spontaneous
  Country: US (occurrence: US)
  Receive Date: 20250430
  Receipt Date: 20250430
  Transmission Date: 20250717
  Serious: No
  Sender: Kenvue
  Company Number: US-KENVUE-20250405830

PATIENT
  Age: 70 Year

DRUGS (2)
  1. WOMENS ROGAINE UNSCENTED [Suspect]
     Active Substance: MINOXIDIL
     Indication: Alopecia
     Route: 061
  2. BIOTIN [Concomitant]
     Active Substance: BIOTIN
     Indication: Alopecia
     Route: 065

REACTIONS (2)
  - Overdose [Unknown]
  - Product use in unapproved indication [Unknown]
